FAERS Safety Report 10767610 (Version 3)
Quarter: 2015Q1

REPORT INFORMATION
  Report Type: Spontaneous
  Country: US (occurrence: US)
  Receive Date: 20150205
  Receipt Date: 20150306
  Transmission Date: 20150721
  Serious: Yes (Other)
  Sender: FDA-Public Use
  Company Number: US-TEVA-538822USA

PATIENT
  Sex: Female

DRUGS (5)
  1. KLONOPIN [Concomitant]
     Active Substance: CLONAZEPAM
  2. AMBIEN [Concomitant]
     Active Substance: ZOLPIDEM TARTRATE
  3. ELAVIL [Concomitant]
     Active Substance: AMITRIPTYLINE HYDROCHLORIDE
  4. ACTIQ [Suspect]
     Active Substance: FENTANYL CITRATE
  5. MORPHINE SULFATE. [Concomitant]
     Active Substance: MORPHINE SULFATE

REACTIONS (7)
  - Tremor [Unknown]
  - Back pain [Unknown]
  - Tooth fracture [Unknown]
  - Cellulitis [Unknown]
  - Drug effect decreased [Unknown]
  - Product quality issue [Unknown]
  - Off label use [Unknown]
